FAERS Safety Report 9364603 (Version 1)
Quarter: 2013Q2

REPORT INFORMATION
  Report Type: Spontaneous
  Country: DK (occurrence: FR)
  Receive Date: 20130624
  Receipt Date: 20130624
  Transmission Date: 20140414
  Serious: Yes (Other)
  Sender: FDA-Public Use
  Company Number: FR-FRI-1000046091

PATIENT
  Age: 61 Year
  Sex: Female

DRUGS (10)
  1. ESCITALOPRAM [Suspect]
     Route: 048
  2. ESCITALOPRAM [Suspect]
     Dosage: OVERDOSE OF UNKNOWN DOSE
  3. BACLOFENE [Suspect]
     Route: 048
  4. BACLOFENE [Suspect]
     Dosage: OVERDOSE OF AN UNKNOWN DOSE
     Route: 048
  5. SERESTA [Suspect]
     Dosage: OVERDOSE OF AN UNKNOWN DOSE
  6. LEXOMIL [Suspect]
     Dosage: OVERDOSE OF UNKNOWN DOSE
     Route: 048
  7. TRAMADOL [Suspect]
     Dosage: OVERDOSE OF UNKNOWN DOSE
     Route: 048
  8. ZOLPIDEM [Suspect]
     Dosage: OVERDOSE OF UNKNOWN DOSE
     Route: 048
  9. RISPERIDONE [Suspect]
     Dosage: OVERDOSE OF UNKNOWN DOSE
     Route: 048
  10. ANTI-VITAMIN K NOS [Concomitant]
     Dosage: DOSE ACCORDING TO INR

REACTIONS (6)
  - Altered state of consciousness [Not Recovered/Not Resolved]
  - Alcohol abuse [Recovered/Resolved]
  - Cardiac arrest [Not Recovered/Not Resolved]
  - Coma [Not Recovered/Not Resolved]
  - Respiratory distress [Recovered/Resolved]
  - Overdose [Not Recovered/Not Resolved]
